FAERS Safety Report 24103683 (Version 1)
Quarter: 2024Q3

REPORT INFORMATION
  Report Type: Report from Study
  Country: US (occurrence: None)
  Receive Date: 20240717
  Receipt Date: 20240717
  Transmission Date: 20241017
  Serious: Yes (Other)
  Sender: ASTRAZENECA
  Company Number: 2020SE89386

PATIENT
  Age: 51 Year
  Sex: Female

DRUGS (18)
  1. FASENRA [Suspect]
     Active Substance: BENRALIZUMAB
     Indication: Asthma
     Route: 058
     Dates: start: 20200213
  2. SYMBICORT [Suspect]
     Active Substance: BUDESONIDE\FORMOTEROL FUMARATE DIHYDRATE
     Dosage: UNKNOWN DOSE UNKNOWN
     Route: 055
  3. FUROSEMIDE [Concomitant]
     Active Substance: FUROSEMIDE
  4. MONTELUKAST [Concomitant]
     Active Substance: MONTELUKAST SODIUM
  5. COENZYME Q10 [Concomitant]
     Active Substance: DIETARY SUPPLEMENT\UBIDECARENONE
  6. LIPITOR [Concomitant]
     Active Substance: ATORVASTATIN CALCIUM
  7. NOVOLOG [Concomitant]
     Active Substance: INSULIN ASPART
  8. ATIVAN [Concomitant]
     Active Substance: LORAZEPAM
  9. PREDNISONE [Concomitant]
     Active Substance: PREDNISONE
  10. GABAPENTIN [Concomitant]
     Active Substance: GABAPENTIN
  11. FIASP [Concomitant]
     Active Substance: INSULIN ASPART
  12. MELOXICAM [Concomitant]
     Active Substance: MELOXICAM
  13. LOSARTAN [Concomitant]
     Active Substance: LOSARTAN
  14. PROAIR HFA [Concomitant]
     Active Substance: ALBUTEROL SULFATE
  15. CLAIRITIN [Concomitant]
  16. ONDANSETRON [Concomitant]
     Active Substance: ONDANSETRON
  17. ALBUTEROL [Concomitant]
     Active Substance: ALBUTEROL
  18. BUPROPION [Concomitant]
     Active Substance: BUPROPION

REACTIONS (1)
  - Breast cancer female [Unknown]
